FAERS Safety Report 8763330 (Version 1)
Quarter: 2012Q4

REPORT INFORMATION
  Report Type: Spontaneous
  Country: JP (occurrence: None)
  Receive Date: 20120828
  Receipt Date: 20120828
  Transmission Date: 20130627
  Serious: Yes (Other)
  Sender: FDA-Public Use
  Company Number: FK201202413

PATIENT
  Age: 69 Year
  Sex: Female

DRUGS (2)
  1. CISPLATIN (MANUFACTURER UNKNOWN){CISPLATIN)(CISPLATIN) [Suspect]
     Indication: TRANSITIONAL CELL CARCINOMA
  2. GEMCITABINE (GEMCITABINE) [Concomitant]

REACTIONS (5)
  - Renal salt-wasting syndrome [None]
  - Hyponatraemia [None]
  - Fatigue [None]
  - Altered state of consciousness [None]
  - Dehydration [None]
